FAERS Safety Report 6806800-2 (Version None)
Quarter: 2010Q2

REPORT INFORMATION
  Report Type: 
  Country: None (occurrence: None)
  Receive Date: 20100628
  Receipt Date: 20100628
  Transmission Date: 20101027
  Serious: Yes (Hospitalization)
  Sender: FDA-Public Use
  Company Number: None

PATIENT
  Age: 70 Year
  Sex: Male
  Weight: 90.7194 kg

DRUGS (1)
  1. AVELOX [Suspect]
     Dosage: 400MG 1 A DAY
     Dates: start: 20100406, end: 20100412

REACTIONS (4)
  - DIARRHOEA [None]
  - HAEMATOCHEZIA [None]
  - MALAISE [None]
  - VOMITING [None]
